FAERS Safety Report 7416464-5 (Version None)
Quarter: 2011Q2

REPORT INFORMATION
  Report Type: 
  Country: None (occurrence: None)
  Receive Date: 20110414
  Receipt Date: 20090930
  Transmission Date: 20111010
  Serious: Yes (Death, Hospitalization, Other)
  Sender: FDA-Public Use
  Company Number: US-BAYER-201038661NA

PATIENT
  Age: 89 Year
  Sex: Female
  Weight: 49.887 kg

DRUGS (23)
  1. PANCURONIUM BROMIDE [Concomitant]
     Dosage: UNK
     Route: 042
     Dates: start: 20021031, end: 20021031
  2. PROPOFOL [Concomitant]
     Dosage: UNK
     Route: 042
     Dates: start: 20021031, end: 20021031
  3. MANNITOL [Concomitant]
     Dosage: 25 G, UNK
     Route: 042
     Dates: start: 20021031, end: 20021031
  4. DIPYRIDAMOLE [Concomitant]
     Dosage: 50 MG, UNK
     Route: 048
  5. PHENYLEPHRIN [Concomitant]
     Dosage: UNK
     Route: 042
     Dates: start: 20021031, end: 20021031
  6. FENTANYL [Concomitant]
     Dosage: UNK
     Route: 042
     Dates: start: 20021031, end: 20021031
  7. HEPARIN [Concomitant]
     Dosage: UNK
     Route: 042
     Dates: start: 20021031, end: 20021031
  8. ETOMIDATE [Concomitant]
     Dosage: UNK
     Route: 042
     Dates: start: 20021031, end: 20021031
  9. TRASYLOL [Suspect]
     Indication: AORTIC VALVE REPLACEMENT
     Dosage: 0.5 ML, TEST DOSE
     Route: 042
     Dates: start: 20021031, end: 20021031
  10. TRASYLOL [Suspect]
     Indication: MITRAL VALVE REPLACEMENT
     Dosage: LOADING DOSE
     Route: 042
     Dates: start: 20021031, end: 20021031
  11. PROCARDIA [Concomitant]
     Dosage: 30 MG, UNK
     Route: 048
  12. LIDOCAINE [Concomitant]
     Dosage: UNK
     Route: 042
     Dates: start: 20021031, end: 20021031
  13. MUCOMYST [Concomitant]
     Dosage: UNK
     Dates: start: 20021026
  14. PROTAMINE SULFATE [Concomitant]
     Dosage: UNK
     Route: 042
     Dates: start: 20021031, end: 20021031
  15. TRASYLOL [Suspect]
     Dosage: 25 ML, Q1HR
     Dates: start: 20021031, end: 20021031
  16. REFLUDAN [Suspect]
     Indication: PRODUCT USED FOR UNKNOWN INDICATION
  17. ACETYLSALICYLIC ACID SRT [Concomitant]
     Route: 048
  18. VANCOMYCIN [Concomitant]
     Dosage: UNK
     Dates: start: 20021030
  19. TRASYLOL [Suspect]
     Dosage: 50 ML, Q1HR
     Route: 042
  20. BUMEX [Concomitant]
     Dosage: 0.5 MG, UNK
     Route: 048
  21. VERSED [Concomitant]
     Dosage: UNK
     Route: 042
     Dates: start: 20021031, end: 20021031
  22. SUFENTANIL [Concomitant]
     Dosage: UNK
     Route: 042
     Dates: start: 20021031, end: 20021031
  23. ZINACEF [Concomitant]
     Dosage: UNK
     Dates: start: 20021030

REACTIONS (14)
  - CEREBROVASCULAR ACCIDENT [None]
  - RENAL IMPAIRMENT [None]
  - PAIN [None]
  - RENAL INJURY [None]
  - FEAR [None]
  - DEATH [None]
  - EMOTIONAL DISTRESS [None]
  - ANXIETY [None]
  - UNEVALUABLE EVENT [None]
  - INJURY [None]
  - DRUG HYPERSENSITIVITY [None]
  - RENAL FAILURE [None]
  - MULTI-ORGAN FAILURE [None]
  - STRESS [None]
